FAERS Safety Report 9759819 (Version 1)
Quarter: 2013Q4

REPORT INFORMATION
  Report Type: Spontaneous
  Country: BE (occurrence: BE)
  Receive Date: 20131216
  Receipt Date: 20131216
  Transmission Date: 20140711
  Serious: Yes (Hospitalization)
  Sender: FDA-Public Use
  Company Number: BE-PFIZER INC-2013353353

PATIENT
  Age: 35 Year
  Sex: Female

DRUGS (4)
  1. EFEXOR EXEL [Suspect]
     Indication: DEPRESSION
     Dosage: 75 MG, SINGLE
     Route: 048
  2. SERENASE [Suspect]
     Indication: SEDATIVE THERAPY
     Dosage: UNK
     Route: 048
  3. SERENASE [Suspect]
     Indication: ANXIETY
  4. SERENASE [Suspect]
     Indication: SLEEP DISORDER

REACTIONS (3)
  - Coma [Unknown]
  - Paresis [Unknown]
  - Paralysis [Unknown]
